FAERS Safety Report 21943249 (Version 1)
Quarter: 2023Q1

REPORT INFORMATION
  Report Type: Spontaneous
  Country: IT (occurrence: None)
  Receive Date: 20230202
  Receipt Date: 20230202
  Transmission Date: 20230418
  Serious: Yes (Other)
  Sender: FDA-Public Use
  Company Number: None

PATIENT
  Age: 75 Year
  Sex: Male
  Weight: 70 kg

DRUGS (7)
  1. BEVACIZUMAB [Suspect]
     Active Substance: BEVACIZUMAB
     Indication: Colon cancer
     Dosage: MOST RECENT DOSE ADMINISTERED ON 16/SEP/2022
     Route: 065
     Dates: start: 20220902
  2. FLUOROURACIL [Suspect]
     Active Substance: FLUOROURACIL
     Indication: Colon cancer
     Dosage: MOST RECENT DOSE ADMINISTERED ON 16/SEP/2022
     Route: 065
     Dates: start: 20220902
  3. FLUOROURACIL [Suspect]
     Active Substance: FLUOROURACIL
     Dosage: MOST RECENT DOSE ADMINISTERED ON 16/SEP/2022
     Route: 065
     Dates: start: 20220902
  4. IRINOTECAN [Suspect]
     Active Substance: IRINOTECAN
     Indication: Colon cancer
     Dosage: MOST RECENT DOSE ADMINISTERED ON 16/SEP/2022
     Route: 065
     Dates: start: 20220902, end: 20220916
  5. ANAFRANIL [Concomitant]
     Active Substance: CLOMIPRAMINE HYDROCHLORIDE
  6. ZESTRIL [Concomitant]
     Active Substance: LISINOPRIL
  7. OLANZAPINE [Concomitant]
     Active Substance: OLANZAPINE

REACTIONS (2)
  - Aortic arteriosclerosis [Unknown]
  - Aneurysm [Unknown]

NARRATIVE: CASE EVENT DATE: 20220913
